FAERS Safety Report 18128980 (Version 1)
Quarter: 2020Q3

REPORT INFORMATION
  Report Type: Spontaneous
  Country: US (occurrence: US)
  Receive Date: 20200810
  Receipt Date: 20200810
  Transmission Date: 20201103
  Serious: No
  Sender: FDA-Public Use
  Company Number: US-PFIZER INC-2019391566

PATIENT
  Age: 77 Year
  Sex: Female

DRUGS (2)
  1. CELECOXIB. [Suspect]
     Active Substance: CELECOXIB
     Indication: OSTEOARTHRITIS
     Dosage: 200 MG, 2X/DAY [WITH FOOD]
     Route: 048
  2. CELECOXIB. [Suspect]
     Active Substance: CELECOXIB
     Dosage: UNK (TAKING THREE 200MG OF THE GENERIC)

REACTIONS (4)
  - Off label use [Unknown]
  - Product dose omission in error [Unknown]
  - Drug ineffective [Unknown]
  - Product use issue [Unknown]
